FAERS Safety Report 17183105 (Version 1)
Quarter: 2019Q4

REPORT INFORMATION
  Report Type: Spontaneous
  Country: SE (occurrence: SE)
  Receive Date: 20191220
  Receipt Date: 20191220
  Transmission Date: 20200122
  Serious: Yes (Hospitalization)
  Sender: FDA-Public Use
  Company Number: SE-TEVA-2019-SE-1153993

PATIENT
  Age: 36 Year
  Sex: Female

DRUGS (17)
  1. BEVIPLEX COMP  FILMDRAGERAD TABLETT [Concomitant]
     Route: 048
     Dates: start: 20180321
  2. ESOMEPRAZOLE. [Concomitant]
     Active Substance: ESOMEPRAZOLE MAGNESIUM
     Dosage: 20 MG
     Route: 048
     Dates: start: 20180215
  3. GABAPENTIN. [Concomitant]
     Active Substance: GABAPENTIN
     Dosage: 1800 MG
     Route: 048
     Dates: start: 20191016
  4. ALVEDON 500 MG FILMDRAGERAD TABLETT [Concomitant]
     Active Substance: ACETAMINOPHEN
     Dosage: 1 - 2 TABLETS VB MAX 8 / DAY
     Route: 048
     Dates: start: 20171225
  5. MIRENA 20 MIKROGRAM/24 TIMMAR INTRAUTERINT INL?GG [Concomitant]
     Route: 015
     Dates: start: 20190221
  6. MOXALOLE [Concomitant]
     Active Substance: POLYETHYLENE GLYCOL 3350\POTASSIUM CHLORIDE\SODIUM BICARBONATE\SODIUM CHLORIDE
     Dosage: 0.5 - 5 DOSE BAGS VB
     Route: 048
     Dates: start: 20180611
  7. DULOXETINE. [Concomitant]
     Active Substance: DULOXETINE
     Dosage: 60 MG
     Route: 048
     Dates: start: 20171007
  8. BUPRENORPHINE. [Suspect]
     Active Substance: BUPRENORPHINE
     Indication: DRUG DEPENDENCE
     Dosage: INCREASE DOSE TO 5 MG DAILY
  9. BUVIDAL 16 MG INJEKTIONSV?TSKA, DEPOTL?SNING [Suspect]
     Active Substance: BUPRENORPHINE
     Indication: DRUG DEPENDENCE
     Dosage: 16 MG 1 / WEEK
     Route: 058
     Dates: start: 20191015, end: 20191021
  10. CYKLOKAPRON 500 MG FILMDRAGERAD TABLETT [Concomitant]
     Dosage: 1 - 2 VB MAX 8/DAG
     Route: 048
     Dates: start: 20190221
  11. KALCIPOS-D FORTE 500 MG/800 IE FILMDRAGERAD TABLETT [Concomitant]
     Dosage: 1 DF
     Route: 048
     Dates: start: 20171225
  12. THERALEN 40 MG/ML ORALA DROPPAR, L?SNING [Concomitant]
     Dosage: 0,5 - 1 ML X 1 - 2 VB
     Dates: start: 20191016
  13. DULOXETINE. [Concomitant]
     Active Substance: DULOXETINE
     Route: 048
     Dates: start: 20181206
  14. FURIX 40 MG TABLETT [Concomitant]
     Dosage: 40 MG
     Route: 048
     Dates: start: 20191016
  15. IMOVANE [Concomitant]
     Active Substance: ZOPICLONE
     Dosage: 1 TABLE TN VB, 7.5 MG
  16. GAVISCON [Concomitant]
     Active Substance: ALUMINUM HYDROXIDE\MAGNESIUM CARBONATE
     Route: 048
     Dates: start: 20191011
  17. LERGIGAN 25 MG FILMDRAGERAD TABLETT [Concomitant]
     Dosage: 1 TABLETT X 1 - 2 VB, 25 MG
     Dates: start: 20171225

REACTIONS (2)
  - Skin ulcer [Not Recovered/Not Resolved]
  - Oedema peripheral [Not Recovered/Not Resolved]

NARRATIVE: CASE EVENT DATE: 20191014
